FAERS Safety Report 14857101 (Version 1)
Quarter: 2018Q2

REPORT INFORMATION
  Report Type: Report from Study
  Country: US (occurrence: US)
  Receive Date: 20180507
  Receipt Date: 20180507
  Transmission Date: 20180711
  Serious: Yes (Hospitalization, Other)
  Sender: FDA-Public Use
  Company Number: US-UCBSA-2017023731

PATIENT
  Age: 64 Year
  Sex: Male
  Weight: 100 kg

DRUGS (14)
  1. VITAMIN C [Concomitant]
     Active Substance: ASCORBIC ACID
     Indication: SUPPLEMENTATION THERAPY
  2. VITAMIN D [Concomitant]
     Active Substance: CHOLECALCIFEROL
     Indication: SUPPLEMENTATION THERAPY
     Dosage: UNK
  3. BENAZEPRIL HYDROCHLORIDE. [Concomitant]
     Active Substance: BENAZEPRIL HYDROCHLORIDE
     Indication: BLOOD PRESSURE MEASUREMENT
     Dosage: 20 MG, 2X/DAY (BID)
     Route: 048
  4. MAGNESIUM W/POTASSIUM [Concomitant]
     Indication: MUSCLE SPASMS
     Dosage: UNK
  5. VITAMIN B [Concomitant]
     Active Substance: VITAMIN B
     Indication: SUPPLEMENTATION THERAPY
     Dosage: UNK
  6. MULTIVITAMIN [Concomitant]
     Active Substance: VITAMINS
     Indication: SUPPLEMENTATION THERAPY
     Dosage: UNK
  7. ROTIGOTINE [Suspect]
     Active Substance: ROTIGOTINE
     Indication: PARKINSON^S DISEASE
     Dosage: 2 MG, UNK
     Route: 062
     Dates: start: 201611, end: 2016
  8. BYSTOLIC [Concomitant]
     Active Substance: NEBIVOLOL HYDROCHLORIDE
     Indication: BLOOD PRESSURE MEASUREMENT
     Dosage: 5 MG DAILY
     Route: 048
     Dates: start: 201611
  9. PROBIOTIC [Concomitant]
     Active Substance: PROBIOTICS NOS
     Indication: SUPPLEMENTATION THERAPY
     Dosage: UNK
  10. VITAMIN K [Concomitant]
     Active Substance: PHYTONADIONE
     Indication: PRODUCT USED FOR UNKNOWN INDICATION
     Dosage: UNK
  11. HYDROCODONE [Concomitant]
     Active Substance: HYDROCODONE
     Indication: PAIN
     Dosage: 10 MG, ONCE DAILY (QD)
     Dates: start: 2017, end: 201706
  12. ROTIGOTINE [Suspect]
     Active Substance: ROTIGOTINE
     Indication: RESTLESS LEGS SYNDROME
     Dosage: 4 MG, ONCE DAILY (QD)
     Route: 062
     Dates: start: 2016
  13. CRESTOR [Concomitant]
     Active Substance: ROSUVASTATIN CALCIUM
     Indication: BLOOD CHOLESTEROL
     Dosage: 5 MG, ONCE DAILY (QD)
     Route: 048
     Dates: start: 201511
  14. BUSPIRONE [Concomitant]
     Active Substance: BUSPIRONE HYDROCHLORIDE
     Indication: ANXIETY
     Dosage: 15 MG 1 AND 1/2 PER DAY
     Route: 048
     Dates: start: 201509

REACTIONS (8)
  - Liposarcoma [Unknown]
  - Joint injury [Recovered/Resolved]
  - Irritability [Not Recovered/Not Resolved]
  - Drug ineffective [Unknown]
  - Intentional product misuse [Unknown]
  - Haematoma [Recovered/Resolved]
  - Wound [Recovered/Resolved]
  - Application site rash [Not Recovered/Not Resolved]

NARRATIVE: CASE EVENT DATE: 201611
